FAERS Safety Report 6845331-0 (Version None)
Quarter: 2010Q3

REPORT INFORMATION
  Report Type: 
  Country: None (occurrence: None)
  Receive Date: 20100715
  Receipt Date: 20070817
  Transmission Date: 20110219
  Serious: No
  Sender: FDA-Public Use
  Company Number: US-PFIZER INC-2007070665

PATIENT
  Sex: Female
  Weight: 140.6 kg

DRUGS (4)
  1. CHANTIX [Suspect]
     Indication: SMOKING CESSATION THERAPY
     Route: 048
     Dates: start: 20070728, end: 20070806
  2. VALSARTAN [Concomitant]
     Route: 048
  3. MONTELUKAST SODIUM [Concomitant]
     Route: 048
  4. ADVAIR DISKUS 100/50 [Concomitant]
     Route: 048

REACTIONS (2)
  - NAUSEA [None]
  - SLEEP DISORDER [None]
